FAERS Safety Report 12798903 (Version 1)
Quarter: 2016Q3

REPORT INFORMATION
  Report Type: Report from Study
  Country: CO (occurrence: CO)
  Receive Date: 20160930
  Receipt Date: 20160930
  Transmission Date: 20161109
  Serious: Yes (Death)
  Sender: FDA-Public Use
  Company Number: CO-ASTELLAS-2016US038511

PATIENT
  Age: 24 Year
  Sex: Male
  Weight: 39 kg

DRUGS (1)
  1. TACROLIMUS. [Suspect]
     Active Substance: TACROLIMUS
     Indication: RENAL TRANSPLANT
     Route: 048
     Dates: start: 20150820, end: 20160115

REACTIONS (1)
  - Death [Fatal]

NARRATIVE: CASE EVENT DATE: 20160115
